FAERS Safety Report 9714241 (Version 2)
Quarter: 2013Q4

REPORT INFORMATION
  Report Type: Spontaneous
  Country: US (occurrence: US)
  Receive Date: 20131126
  Receipt Date: 20131126
  Transmission Date: 20140711
  Serious: No
  Sender: FDA-Public Use
  Company Number: US-GILEAD-2008-0019285

PATIENT
  Sex: Male
  Weight: 108.86 kg

DRUGS (12)
  1. LETAIRIS [Suspect]
     Indication: PULMONARY ARTERIAL HYPERTENSION
     Route: 048
     Dates: start: 20081107
  2. LASIX [Concomitant]
     Route: 048
  3. NORVASC [Concomitant]
     Route: 048
  4. SPIRONOLACTONE [Concomitant]
     Route: 048
  5. IMDUR [Concomitant]
     Route: 048
  6. COREG [Concomitant]
     Route: 048
  7. ZETIA [Concomitant]
     Route: 048
  8. OXYCODONE [Concomitant]
     Route: 048
  9. METHADONE [Concomitant]
     Route: 048
  10. XIFAXAN [Concomitant]
     Route: 048
  11. PROTONIX [Concomitant]
     Route: 048
  12. POTASSIUM CHLORIDE [Concomitant]
     Route: 048

REACTIONS (1)
  - Depression [None]
